FAERS Safety Report 24174493 (Version 2)
Quarter: 2024Q4

REPORT INFORMATION
  Report Type: Spontaneous
  Country: JP (occurrence: JP)
  Receive Date: 20240805
  Receipt Date: 20241115
  Transmission Date: 20250114
  Serious: Yes (Death, Hospitalization)
  Sender: ELI LILLY AND COMPANY
  Company Number: JP-NShinyaku-EVA202305126ZZLILLY

PATIENT
  Age: 82 Year
  Sex: Female

DRUGS (7)
  1. TADALAFIL [Suspect]
     Active Substance: TADALAFIL
     Indication: Pulmonary arterial hypertension
     Dosage: UNKNOWN
     Route: 048
  2. TADALAFIL [Suspect]
     Active Substance: TADALAFIL
     Indication: Systemic scleroderma
  3. UPTRAVI [Concomitant]
     Active Substance: SELEXIPAG
     Indication: Pulmonary arterial hypertension
     Dosage: UNKNOWN
     Route: 048
     Dates: start: 20170222
  4. UPTRAVI [Concomitant]
     Active Substance: SELEXIPAG
     Indication: Systemic scleroderma
     Dosage: 1.6 MG, DAILY
     Route: 048
  5. UPTRAVI [Concomitant]
     Active Substance: SELEXIPAG
     Dosage: UNKNOWN
     Route: 048
  6. OPSUMIT [Concomitant]
     Active Substance: MACITENTAN
     Indication: Pulmonary arterial hypertension
     Dosage: UNKNOWN
  7. OPSUMIT [Concomitant]
     Active Substance: MACITENTAN
     Indication: Systemic scleroderma

REACTIONS (4)
  - Pulmonary arterial hypertension [Fatal]
  - Systemic scleroderma [Fatal]
  - Fall [Recovering/Resolving]
  - Injury [Recovering/Resolving]
